FAERS Safety Report 16358628 (Version 2)
Quarter: 2019Q2

REPORT INFORMATION
  Report Type: Spontaneous
  Country: JP (occurrence: JP)
  Receive Date: 20190527
  Receipt Date: 20190627
  Transmission Date: 20190711
  Serious: Yes (Hospitalization, Disabling, Other)
  Sender: FDA-Public Use
  Company Number: JP-009507513-1903JPN003339J

PATIENT
  Age: 75 Year
  Sex: Male
  Weight: 66 kg

DRUGS (6)
  1. KEYTRUDA [Suspect]
     Active Substance: PEMBROLIZUMAB
     Dosage: 200 MILLIGRAM, Q3W
     Route: 041
     Dates: start: 20190612
  2. CARBOPLATIN. [Suspect]
     Active Substance: CARBOPLATIN
     Dosage: 360 MILLIGRAM, Q3W
     Route: 041
     Dates: start: 20190612
  3. PEMETREXED DISODIUM [Suspect]
     Active Substance: PEMETREXED DISODIUM
     Indication: NON-SMALL CELL LUNG CANCER
     Dosage: 850 MILLIGRAM, Q3W
     Route: 041
     Dates: start: 20190306
  4. KEYTRUDA [Suspect]
     Active Substance: PEMBROLIZUMAB
     Indication: NON-SMALL CELL LUNG CANCER
     Dosage: 200 MILLIGRAM, Q3W
     Route: 041
     Dates: start: 20190306, end: 20190306
  5. KEYTRUDA [Suspect]
     Active Substance: PEMBROLIZUMAB
     Dosage: 200 MILLIGRAM, Q3W
     Route: 041
     Dates: start: 201904, end: 201904
  6. CARBOPLATIN. [Suspect]
     Active Substance: CARBOPLATIN
     Indication: NON-SMALL CELL LUNG CANCER
     Dosage: 450 MILLIGRAM, Q3W
     Route: 041
     Dates: start: 20190306, end: 20190421

REACTIONS (6)
  - Urinary retention [Not Recovered/Not Resolved]
  - Kidney infection [Recovered/Resolved]
  - Gait disturbance [Unknown]
  - Tumour associated fever [Recovered/Resolved]
  - Pyelonephritis [Recovering/Resolving]
  - Hydronephrosis [Unknown]

NARRATIVE: CASE EVENT DATE: 20190322
